FAERS Safety Report 8145498-0 (Version None)
Quarter: 2012Q1

REPORT INFORMATION
  Report Type: 
  Country: None (occurrence: None)
  Receive Date: 20120217
  Receipt Date: 20120206
  Transmission Date: 20120608
  Serious: No
  Sender: FDA-Public Use
  Company Number: US-COVIDIEN/TYCO HEALTHCARE/MALLINCKRODT-T201200572

PATIENT
  Sex: Male
  Weight: 90.703 kg

DRUGS (4)
  1. HYDROMORPHONE HCL [Concomitant]
     Indication: PAIN
     Dosage: 16 MG Q4 HOURS
     Route: 048
  2. EXALGO [Suspect]
     Indication: PAIN
     Dosage: 16 MG  TID
     Route: 048
     Dates: start: 20110101
  3. XANAX [Concomitant]
     Indication: ANXIETY
     Dosage: 2 MG, BID
     Route: 048
  4. METHADONE HCL [Concomitant]

REACTIONS (3)
  - INTENTIONAL DRUG MISUSE [None]
  - DIZZINESS [None]
  - NAUSEA [None]
